FAERS Safety Report 6848799-9 (Version None)
Quarter: 2010Q3

REPORT INFORMATION
  Report Type: 
  Country: None (occurrence: None)
  Receive Date: 20100716
  Receipt Date: 20070910
  Transmission Date: 20110219
  Serious: No
  Sender: FDA-Public Use
  Company Number: US-PFIZER INC-2007076135

PATIENT
  Sex: Female
  Weight: 90.9 kg

DRUGS (9)
  1. CHANTIX [Suspect]
     Indication: SMOKING CESSATION THERAPY
     Dates: start: 20070727
  2. LYRICA [Concomitant]
  3. CALAN [Concomitant]
  4. VYTORIN [Concomitant]
  5. THEOPHYLLINE [Concomitant]
  6. NITROGLYCERIN [Concomitant]
  7. FUROSEMIDE [Concomitant]
  8. VALSARTAN [Concomitant]
  9. INSULIN [Concomitant]

REACTIONS (3)
  - DRUG DOSE OMISSION [None]
  - INSOMNIA [None]
  - NAUSEA [None]
